FAERS Safety Report 18218385 (Version 1)
Quarter: 2020Q3

REPORT INFORMATION
  Report Type: Spontaneous
  Country: DE (occurrence: DE)
  Receive Date: 20200901
  Receipt Date: 20200901
  Transmission Date: 20201103
  Serious: Yes (Other)
  Sender: FDA-Public Use
  Company Number: DE-PFIZER INC-2020297780

PATIENT
  Age: 30 Year
  Sex: Female
  Weight: 85 kg

DRUGS (2)
  1. CYTOTEC [Suspect]
     Active Substance: MISOPROSTOL
     Indication: PROLONGED PREGNANCY
     Dosage: 3 TABLETS 9:00 A.M. ? 3:00 P.M. 1 1/4 TABLETS
  2. CYTOTEC [Suspect]
     Active Substance: MISOPROSTOL
     Indication: LABOUR INDUCTION
     Dosage: 3 DF (3 TABLETS)
     Route: 048
     Dates: start: 20160322, end: 20160322

REACTIONS (6)
  - Off label use [Unknown]
  - Product use in unapproved indication [Unknown]
  - Uterine cervical laceration [Recovered/Resolved]
  - Haemorrhage [Recovered/Resolved]
  - Uterine rupture [Recovered/Resolved]
  - Uterine haemorrhage [Recovered/Resolved]

NARRATIVE: CASE EVENT DATE: 20160322
